FAERS Safety Report 9737026 (Version 2)
Quarter: 2015Q3

REPORT INFORMATION
  Report Type: Spontaneous
  Country: US (occurrence: US)
  Receive Date: 20131206
  Receipt Date: 20150804
  Transmission Date: 20151125
  Serious: No
  Sender: FDA-Public Use
  Company Number: US-GILEAD-2009-0024221

PATIENT
  Age: 44 Year
  Sex: Female
  Weight: 61.23 kg

DRUGS (21)
  1. COUMADIN [Concomitant]
     Active Substance: WARFARIN SODIUM
  2. SPIRINOLACTONE [Concomitant]
  3. METOLAZONE. [Concomitant]
     Active Substance: METOLAZONE
  4. REVATIO [Concomitant]
     Active Substance: SILDENAFIL CITRATE
  5. FLOLAN [Concomitant]
     Active Substance: EPOPROSTENOL SODIUM
  6. DILAUDID [Concomitant]
     Active Substance: HYDROMORPHONE HYDROCHLORIDE
  7. XANAX [Concomitant]
     Active Substance: ALPRAZOLAM
  8. LASIX [Concomitant]
     Active Substance: FUROSEMIDE
  9. CRESTOR [Concomitant]
     Active Substance: ROSUVASTATIN CALCIUM
  10. IRON [Concomitant]
     Active Substance: IRON
  11. INDOMETHACIN. [Concomitant]
     Active Substance: INDOMETHACIN
  12. FLOLAN [Concomitant]
     Active Substance: EPOPROSTENOL SODIUM
  13. CLARITIN [Concomitant]
     Active Substance: LORATADINE
  14. COLCHICINE. [Concomitant]
     Active Substance: COLCHICINE
  15. ALLOPURINOL. [Concomitant]
     Active Substance: ALLOPURINOL
  16. LETAIRIS [Suspect]
     Active Substance: AMBRISENTAN
     Indication: PULMONARY ARTERIAL HYPERTENSION
     Route: 048
     Dates: start: 20080730
  17. ZOLOFT [Concomitant]
     Active Substance: SERTRALINE HYDROCHLORIDE
  18. DIGOXIN. [Concomitant]
     Active Substance: DIGOXIN
  19. AMITRIPTYLINE [Concomitant]
     Active Substance: AMITRIPTYLINE
  20. HYDRCODONE/APAP [Concomitant]
  21. POTASSIUM [Concomitant]
     Active Substance: POTASSIUM

REACTIONS (1)
  - Oedema peripheral [Unknown]
